FAERS Safety Report 9264619 (Version 2)
Quarter: 2013Q2

REPORT INFORMATION
  Report Type: Spontaneous
  Country: US (occurrence: US)
  Receive Date: 20130501
  Receipt Date: 20130610
  Transmission Date: 20140414
  Serious: No
  Sender: FDA-Public Use
  Company Number: US-BIOGENIDEC-2013BI036998

PATIENT
  Sex: Female

DRUGS (3)
  1. AVONEX [Suspect]
     Indication: MULTIPLE SCLEROSIS
     Route: 030
     Dates: start: 200710
  2. AVONEX [Suspect]
     Indication: MULTIPLE SCLEROSIS
     Route: 030
     Dates: end: 200904
  3. SODI- MEDROL [Concomitant]
     Indication: MULTIPLE SCLEROSIS

REACTIONS (4)
  - Central nervous system lesion [Not Recovered/Not Resolved]
  - Addison^s disease [Not Recovered/Not Resolved]
  - General symptom [Unknown]
  - Drug ineffective [Unknown]
